FAERS Safety Report 23578798 (Version 1)
Quarter: 2024Q1

REPORT INFORMATION
  Report Type: Spontaneous
  Country: ZA (occurrence: ZA)
  Receive Date: 20240229
  Receipt Date: 20240229
  Transmission Date: 20240410
  Serious: Yes (Hospitalization, Other)
  Sender: FDA-Public Use
  Company Number: ZA-LUPIN PHARMACEUTICALS INC.-2024-01475

PATIENT

DRUGS (3)
  1. LOSARTAN POTASSIUM [Suspect]
     Active Substance: LOSARTAN POTASSIUM
     Indication: Hypertension
     Dosage: 50 MG, QD
     Route: 048
  2. BISOPROLOL FUMARATE [Suspect]
     Active Substance: BISOPROLOL FUMARATE
     Indication: Hypertension
     Dosage: 0.5 DOSAGE FORM, QD (5 MG, A HALF A TABLET DAILY)
     Route: 048
  3. GEMFIBROZIL [Suspect]
     Active Substance: GEMFIBROZIL
     Indication: Blood cholesterol abnormal
     Dosage: 40 MG, HS (AT NIGHT)
     Route: 048

REACTIONS (1)
  - Myocardial infarction [Unknown]
